FAERS Safety Report 19417333 (Version 1)
Quarter: 2021Q2

REPORT INFORMATION
  Report Type: Spontaneous
  Country: US (occurrence: US)
  Receive Date: 20210615
  Receipt Date: 20210615
  Transmission Date: 20210717
  Serious: Yes (Death)
  Sender: FDA-Public Use
  Company Number: None

PATIENT
  Age: 91 Year
  Sex: Male

DRUGS (3)
  1. BREO ELLIPTA, SPIRIVA, LASIX, LISINOPRIL, LIPITOR, COREG, PLAVIX [Concomitant]
  2. ELIGARD [Suspect]
     Active Substance: LEUPROLIDE ACETATE
     Indication: PROSTATE CANCER
     Dosage: ?          OTHER FREQUENCY:EVERY SIX MONTHS;?
     Route: 058
     Dates: start: 20151112, end: 20210613
  3. ALBUTEROL, ADVAIR DISKU [Concomitant]

REACTIONS (1)
  - Death [None]

NARRATIVE: CASE EVENT DATE: 20210613
